FAERS Safety Report 5902420-2 (Version None)
Quarter: 2008Q3

REPORT INFORMATION
  Report Type: 
  Country: None (occurrence: None)
  Receive Date: 20080925
  Receipt Date: 20080915
  Transmission Date: 20090109
  Serious: Yes (Hospitalization)
  Sender: FDA-Public Use
  Company Number: DSA_32432_2008

PATIENT
  Sex: Male

DRUGS (6)
  1. NIFEDIPINE HCL [Suspect]
     Indication: BLOOD PRESSURE INCREASED
     Dosage: (60 MG QD ORAL)
     Route: 048
     Dates: start: 20080501, end: 20080701
  2. LASIX [Suspect]
     Indication: BLOOD PRESSURE INCREASED
     Dosage: (DF)
  3. POTASSIUM CHLORIDE [Suspect]
     Indication: BLOOD PRESSURE INCREASED
     Dosage: (DF)
  4. NIFEDIPINE [Suspect]
     Indication: HYPERTENSION
     Dosage: (DF)
     Dates: start: 20060101, end: 20080501
  5. WARFARIN SODIUM [Concomitant]
  6. BP MEDICATION [Concomitant]

REACTIONS (4)
  - BLOOD PRESSURE INCREASED [None]
  - HYPERSENSITIVITY [None]
  - OEDEMA PERIPHERAL [None]
  - REACTION TO DRUG EXCIPIENTS [None]
